FAERS Safety Report 4996277-4 (Version None)
Quarter: 2006Q2

REPORT INFORMATION
  Report Type: 
  Country: None (occurrence: None)
  Receive Date: 20060505
  Receipt Date: 20060421
  Transmission Date: 20061013
  Serious: Yes (Hospitalization)
  Sender: FDA-Public Use
  Company Number: 06-0055PO

PATIENT
  Age: 32 Year
  Sex: Male

DRUGS (5)
  1. PONTAL (MEFENAMIC ACID) [Suspect]
     Indication: TOOTHACHE
     Dosage: ORAL
     Route: 048
  2. RISPERDAL [Concomitant]
  3. LEVOTOMIN [Concomitant]
  4. DEPAKENE [Concomitant]
  5. AKINETON [Concomitant]

REACTIONS (2)
  - CONVULSION [None]
  - OVERDOSE [None]
